FAERS Safety Report 9674648 (Version 1)
Quarter: 2013Q4

REPORT INFORMATION
  Report Type: Spontaneous
  Country: None (occurrence: None)
  Receive Date: 20131106
  Receipt Date: 20131106
  Transmission Date: 20140711
  Serious: No
  Sender: FDA-Public Use
  Company Number: None

PATIENT
  Age: 41 Year
  Sex: Female

DRUGS (2)
  1. MIRVASO [Suspect]
     Indication: FLUSHING
     Dosage: ONCE DAILY, APPLIED TO A SURFACE USUALLY THE SKIN
     Dates: start: 20130926, end: 20130930
  2. MIRVASO [Suspect]
     Indication: ERYTHEMA
     Dosage: ONCE DAILY, APPLIED TO A SURFACE USUALLY THE SKIN
     Dates: start: 20130926, end: 20130930

REACTIONS (3)
  - Rosacea [None]
  - Condition aggravated [None]
  - Rebound effect [None]
